FAERS Safety Report 8176797-4 (Version None)
Quarter: 2012Q1

REPORT INFORMATION
  Report Type: 
  Country: None (occurrence: None)
  Receive Date: 20120301
  Receipt Date: 20111024
  Transmission Date: 20120608
  Serious: Yes (Hospitalization, Other)
  Sender: FDA-Public Use
  Company Number: GB-UCBSA-042208

PATIENT
  Age: 47 Year
  Sex: Female
  Weight: 56 kg

DRUGS (4)
  1. CIMZIA [Suspect]
     Dosage: 400 MG
     Route: 058
     Dates: start: 20110901, end: 20110101
  2. F ACID [Concomitant]
     Dosage: 5 MG
  3. CIMZIA [Suspect]
     Indication: ANKYLOSING SPONDYLITIS
     Route: 058
     Dates: start: 20110101
  4. METHOTREXATE [Concomitant]
     Dosage: 20 MG

REACTIONS (9)
  - ANAPHYLACTIC REACTION [None]
  - MYOCARDIAL INFARCTION [None]
  - EYE SWELLING [None]
  - PHARYNGEAL OEDEMA [None]
  - LOCAL SWELLING [None]
  - DYSPNOEA [None]
  - OEDEMA MOUTH [None]
  - PRURITUS [None]
  - SWELLING FACE [None]
